FAERS Safety Report 22222699 (Version 1)
Quarter: 2023Q2

REPORT INFORMATION
  Report Type: Spontaneous
  Country: JP (occurrence: JP)
  Receive Date: 20230418
  Receipt Date: 20230418
  Transmission Date: 20230722
  Serious: Yes (Hospitalization)
  Sender: FDA-Public Use
  Company Number: JP-SA-2023SA114713

PATIENT
  Age: 13 Month
  Sex: Female

DRUGS (1)
  1. SABRIL [Suspect]
     Active Substance: VIGABATRIN
     Indication: Infantile spasms
     Dosage: DAILY DOSE: 50 MG/KG
     Route: 048
     Dates: start: 20230308, end: 20230323

REACTIONS (3)
  - Drooling [Recovered/Resolved]
  - Rhinorrhoea [Recovered/Resolved]
  - Drug ineffective [Unknown]

NARRATIVE: CASE EVENT DATE: 20230301
